FAERS Safety Report 7659461-7 (Version None)
Quarter: 2011Q3

REPORT INFORMATION
  Report Type: 
  Country: None (occurrence: None)
  Receive Date: 20110805
  Receipt Date: 20110725
  Transmission Date: 20111222
  Serious: Yes (Hospitalization)
  Sender: FDA-Public Use
  Company Number: JP-JNJFOC-20110709038

PATIENT
  Sex: Female
  Weight: 55 kg

DRUGS (6)
  1. REMICADE [Suspect]
     Indication: RHEUMATOID ARTHRITIS
     Dosage: 9TH INFUSION
     Route: 042
     Dates: start: 20091022
  2. REMICADE [Suspect]
     Dosage: 1ST INFUSION
     Route: 042
     Dates: start: 20081007
  3. TACROLIMUS [Suspect]
     Indication: POLYMYOSITIS
  4. FOLIC ACID [Concomitant]
     Indication: PROPHYLAXIS
     Route: 065
     Dates: end: 20091029
  5. RHEUMATREX [Concomitant]
     Indication: RHEUMATOID ARTHRITIS
     Route: 065
     Dates: start: 19890901, end: 20091027
  6. REMICADE [Suspect]
     Dosage: INFUSIONS 2 TO 8, DATES AND DOSE UNSPECIFIED.
     Route: 042

REACTIONS (2)
  - POLYMYOSITIS [None]
  - ALOPECIA [None]
